FAERS Safety Report 25841075 (Version 1)
Quarter: 2025Q3

REPORT INFORMATION
  Report Type: Spontaneous
  Country: US (occurrence: None)
  Receive Date: 20250923
  Receipt Date: 20250923
  Transmission Date: 20251020
  Serious: No
  Sender: FDA-CTU
  Company Number: None

PATIENT
  Age: 64 Year
  Sex: Male

DRUGS (2)
  1. JAKAFI [Suspect]
     Active Substance: RUXOLITINIB
     Indication: Myeloproliferative neoplasm
     Dosage: FREQUENCY : TWICE A DAY;?
     Route: 048
     Dates: start: 20250210
  2. JAKAFI [Suspect]
     Active Substance: RUXOLITINIB
     Indication: Chronic disease

REACTIONS (2)
  - Asthma [None]
  - Hernia repair [None]

NARRATIVE: CASE EVENT DATE: 20250923
